FAERS Safety Report 7328533-9 (Version None)
Quarter: 2011Q1

REPORT INFORMATION
  Report Type: 
  Country: None (occurrence: None)
  Receive Date: 20110303
  Receipt Date: 20110207
  Transmission Date: 20110831
  Serious: No
  Sender: FDA-Public Use
  Company Number: US-B.I. PHARMACEUTICALS,INC./RIDGEFIELD-2011-BP-04495BP

PATIENT
  Age: 75 Year
  Sex: Female

DRUGS (6)
  1. SINGULAIR [Concomitant]
     Indication: HYPERSENSITIVITY
  2. SYNTHROID [Concomitant]
     Indication: THYROID DISORDER
     Route: 048
  3. LORAZEPAM [Concomitant]
     Indication: SLEEP DISORDER
     Dosage: 40 MG
     Route: 048
     Dates: start: 20010101
  4. LISINOPRIL [Concomitant]
     Indication: HYPERTENSION
     Dosage: 40 MG
     Route: 048
  5. PRADAXA [Suspect]
     Indication: ATRIAL FIBRILLATION
     Dosage: 300 MG
     Route: 048
     Dates: start: 20110203
  6. FLECAINIDE ACETATE [Concomitant]
     Indication: ATRIAL FIBRILLATION
     Dosage: 50 MG
     Route: 048
     Dates: start: 20110131

REACTIONS (4)
  - PRURITUS [None]
  - ERYTHEMA [None]
  - BURNING SENSATION [None]
  - EAR DISCOMFORT [None]
